FAERS Safety Report 4354320-X (Version None)
Quarter: 2004Q2

REPORT INFORMATION
  Report Type: 
  Country: None (occurrence: None)
  Receive Date: 20040503
  Receipt Date: 20040423
  Transmission Date: 20050107
  Serious: Yes (Hospitalization)
  Sender: FDA-Public Use
  Company Number: 200411485GDS

PATIENT
  Age: 93 Year
  Sex: Female

DRUGS (2)
  1. ASPIRIN [Suspect]
     Indication: ENCEPHALOPATHY
     Dosage: 50 MG, QD, ORAL
     Route: 048
     Dates: start: 20030101, end: 20040401
  2. GLIBEN F (PHENFORMIN + GLINENCLAMIDE) [Suspect]
     Indication: DIABETES MELLITUS
     Dosage: 30 MG, TID, ORAL
     Route: 048
     Dates: start: 20030101, end: 20040421

REACTIONS (4)
  - BLOOD GLUCOSE INCREASED [None]
  - BLOOD SODIUM DECREASED [None]
  - LACTIC ACIDOSIS [None]
  - PCO2 DECREASED [None]
